FAERS Safety Report 9246867 (Version 2)
Quarter: 2013Q2

REPORT INFORMATION
  Report Type: Spontaneous
  Country: US (occurrence: US)
  Receive Date: 20130422
  Receipt Date: 20130510
  Transmission Date: 20140414
  Serious: Yes (Other)
  Sender: FDA-Public Use
  Company Number: US-B.I. PHARMACEUTICALS,INC./RIDGEFIELD-2013-BI-10504BP

PATIENT
  Sex: Female

DRUGS (9)
  1. PRADAXA [Suspect]
     Dosage: 150 MG
     Route: 048
     Dates: start: 201204
  2. POTASSIUM CHLORIDE SR [Concomitant]
     Dosage: 20 MEQ
     Route: 048
  3. DETROL LA [Concomitant]
     Dosage: 2 MG
     Route: 048
  4. SERTRALINE [Concomitant]
     Dosage: 25 MG
     Route: 048
  5. DILTIAZEM ER [Concomitant]
     Dosage: 300 MG
     Route: 048
  6. DEXILANT [Concomitant]
     Dosage: 120 MG
     Route: 048
  7. HYDROCONE/ACETAMINOPHEN [Concomitant]
     Indication: PAIN
     Route: 048
  8. ONDANSETRON ORAL DISINTEGRATING [Concomitant]
     Indication: NAUSEA
     Route: 048
  9. LORATIDINE [Concomitant]
     Dosage: 10 MG
     Route: 048

REACTIONS (2)
  - Retching [Recovered/Resolved]
  - Dysphagia [Not Recovered/Not Resolved]
